FAERS Safety Report 10736747 (Version 1)
Quarter: 2015Q1

REPORT INFORMATION
  Report Type: Spontaneous
  Country: US (occurrence: None)
  Receive Date: 20150123
  Receipt Date: 20150123
  Transmission Date: 20150721
  Serious: Yes (Hospitalization)
  Sender: FDA-Public Use
  Company Number: None

PATIENT
  Age: 88 Year
  Sex: Male
  Weight: 92.5 kg

DRUGS (1)
  1. WARFARIN [Suspect]
     Active Substance: WARFARIN
     Indication: ATRIAL FIBRILLATION
     Route: 048
     Dates: start: 20131212, end: 20140828

REACTIONS (4)
  - Gastric haemorrhage [None]
  - Haemorrhage [None]
  - Haemoptysis [None]
  - Melaena [None]

NARRATIVE: CASE EVENT DATE: 20140827
